FAERS Safety Report 7998197-X (Version None)
Quarter: 2011Q4

REPORT INFORMATION
  Report Type: 
  Country: None (occurrence: None)
  Receive Date: 20111221
  Receipt Date: 20110331
  Transmission Date: 20120403
  Serious: No
  Sender: FDA-Public Use
  Company Number: US-GLAXOSMITHKLINE-A0921526A

PATIENT
  Sex: Female

DRUGS (1)
  1. LOVAZA [Suspect]
     Dosage: 1G UNKNOWN
     Route: 065
     Dates: start: 20100331

REACTIONS (1)
  - PARAESTHESIA ORAL [None]
